FAERS Safety Report 15961737 (Version 1)
Quarter: 2019Q1

REPORT INFORMATION
  Report Type: Spontaneous
  Country: US (occurrence: US)
  Receive Date: 20190214
  Receipt Date: 20190214
  Transmission Date: 20190417
  Serious: Yes (Other)
  Sender: FDA-Public Use
  Company Number: None

PATIENT
  Age: 86 Year
  Sex: Female
  Weight: 65.7 kg

DRUGS (16)
  1. POTASSIUM [Concomitant]
     Active Substance: POTASSIUM
  2. ZOFRAN [Concomitant]
     Active Substance: ONDANSETRON HYDROCHLORIDE
  3. IBRANCE [Suspect]
     Active Substance: PALBOCICLIB
     Indication: BREAST CANCER
     Route: 048
     Dates: start: 20180205
  4. CALCIUM + VITAMIN D [Concomitant]
     Active Substance: CALCIUM\VITAMIN D
  5. CLONIDINE. [Concomitant]
     Active Substance: CLONIDINE
  6. RANITIDINE. [Concomitant]
     Active Substance: RANITIDINE
  7. GABAPENTIN. [Concomitant]
     Active Substance: GABAPENTIN
  8. LORATADINE. [Concomitant]
     Active Substance: LORATADINE
  9. APAP [Concomitant]
     Active Substance: ACETAMINOPHEN
  10. NORCO [Concomitant]
     Active Substance: ACETAMINOPHEN\HYDROCODONE BITARTRATE
  11. AMLODIPINE [Concomitant]
     Active Substance: AMLODIPINE BESYLATE
  12. DOCUSATE [Concomitant]
     Active Substance: DOCUSATE
  13. MULTIVITAMIN [Concomitant]
     Active Substance: VITAMINS
  14. HYDROXYZINE [Concomitant]
     Active Substance: HYDROXYZINE HYDROCHLORIDE
  15. BISACODYL. [Concomitant]
     Active Substance: BISACODYL
  16. LETROZOLE. [Concomitant]
     Active Substance: LETROZOLE

REACTIONS (1)
  - White blood cell count decreased [None]
